FAERS Safety Report 7120756-7 (Version None)
Quarter: 2010Q4

REPORT INFORMATION
  Report Type: 
  Country: None (occurrence: None)
  Receive Date: 20101124
  Receipt Date: 20101122
  Transmission Date: 20110411
  Serious: Yes (Hospitalization)
  Sender: FDA-Public Use
  Company Number: US-BAYER-201041986NA

PATIENT
  Sex: Female

DRUGS (2)
  1. BETASERON [Suspect]
     Indication: PRODUCT USED FOR UNKNOWN INDICATION
  2. AVONEX [Concomitant]
     Dosage: UNKNOWN DOSING
     Dates: start: 20091026

REACTIONS (1)
  - CONVULSION [None]
